FAERS Safety Report 5411568-0 (Version None)
Quarter: 2007Q3

REPORT INFORMATION
  Report Type: 
  Country: None (occurrence: None)
  Receive Date: 20070810
  Receipt Date: 20070801
  Transmission Date: 20080115
  Serious: Yes (Hospitalization)
  Sender: FDA-Public Use
  Company Number: DE-PFIZER INC-2007043381

PATIENT
  Sex: Male
  Weight: 104 kg

DRUGS (12)
  1. SU-011,248 [Suspect]
     Indication: METASTATIC RENAL CELL CARCINOMA
     Route: 048
  2. ASPIRIN [Concomitant]
     Route: 048
  3. CLOTRIMAZOLE [Concomitant]
     Route: 061
     Dates: start: 20070502
  4. CANDIO-HERMAL [Concomitant]
     Route: 061
     Dates: start: 20070502
  5. LEVOTHYROXINE SODIUM [Concomitant]
     Route: 048
     Dates: start: 20000817
  6. ALNA [Concomitant]
     Route: 048
     Dates: start: 19980604
  7. ALLOPURINOL [Concomitant]
     Route: 048
     Dates: start: 20030422
  8. METOHEXAL [Concomitant]
     Route: 048
     Dates: start: 20050106
  9. VIANI [Concomitant]
     Route: 055
     Dates: start: 20050106
  10. CANDESARTAN CILEXETIL [Concomitant]
     Route: 048
     Dates: start: 20060419
  11. MAALOXAN [Concomitant]
     Route: 048
     Dates: start: 20060503
  12. OMEPRAZOLE [Concomitant]
     Route: 048
     Dates: start: 20060405

REACTIONS (1)
  - PNEUMONIA [None]
